FAERS Safety Report 5715366-X (Version None)
Quarter: 2008Q2

REPORT INFORMATION
  Report Type: 
  Country: None (occurrence: None)
  Receive Date: 20080422
  Receipt Date: 20080409
  Transmission Date: 20081010
  Serious: Yes (Hospitalization)
  Sender: FDA-Public Use
  Company Number: 1-16015414/MED-08075

PATIENT

DRUGS (3)
  1. TRAZODONE HCL [Suspect]
     Dosage: ORAL
     Route: 048
  2. BUPROPION OR BUSPIRONE [Concomitant]
  3. ETHANOL [Concomitant]

REACTIONS (2)
  - ELECTROCARDIOGRAM QT PROLONGED [None]
  - INTENTIONAL OVERDOSE [None]
